FAERS Safety Report 7956920-4 (Version None)
Quarter: 2011Q4

REPORT INFORMATION
  Report Type: 
  Country: None (occurrence: None)
  Receive Date: 20111205
  Receipt Date: 20111122
  Transmission Date: 20120403
  Serious: Yes (Hospitalization, Other)
  Sender: FDA-Public Use
  Company Number: JP-ELI_LILLY_AND_COMPANY-JP201110007183

PATIENT
  Sex: Male
  Weight: 64 kg

DRUGS (11)
  1. ADALAT [Concomitant]
     Indication: HYPERTENSION
     Dosage: 20 MG, UNK
     Route: 048
  2. LAXOBERON [Concomitant]
     Indication: CONSTIPATION
     Dosage: 5 MG, UNK
     Route: 048
     Dates: end: 20111031
  3. PRASUGREL HYDROCHLORIDE [Suspect]
     Indication: CORONARY ARTERY DISEASE
     Dosage: UNK
     Dates: start: 20111021, end: 20111024
  4. CANDESARTAN CILEXETIL [Concomitant]
     Indication: HYPERTENSION
     Dosage: 4 MG, UNK
     Route: 048
  5. LOXONIN [Concomitant]
     Indication: PUNCTURE SITE PAIN
     Dosage: 60 MG, PRN
     Route: 048
     Dates: start: 20111020, end: 20111031
  6. SENNOSIDE [Concomitant]
     Indication: CONSTIPATION
     Dosage: 24 MG, UNK
     Route: 048
     Dates: end: 20111031
  7. NITRODERM [Concomitant]
     Indication: ANGINA UNSTABLE
     Dosage: 25 MG, UNK
     Route: 062
  8. CELECOXIB [Concomitant]
     Indication: MUSCULOSKELETAL PAIN
     Dosage: 200 MG, UNK
     Route: 048
     Dates: start: 20111021
  9. NEUER [Concomitant]
     Indication: PROPHYLAXIS
     Dosage: 400 MG, UNK
     Route: 048
     Dates: end: 20111031
  10. ASPIRIN [Concomitant]
     Indication: ANGINA UNSTABLE
     Dosage: 100 MG, UNK
     Route: 048
     Dates: start: 20111022
  11. BISOLVON [Concomitant]
     Indication: PRODUCTIVE COUGH
     Dosage: 8 MG, UNK
     Route: 048

REACTIONS (2)
  - NERVE INJURY [None]
  - VASCULAR PSEUDOANEURYSM [None]
